FAERS Safety Report 15906171 (Version 1)
Quarter: 2019Q1

REPORT INFORMATION
  Report Type: Spontaneous
  Country: CN (occurrence: CN)
  Receive Date: 20190204
  Receipt Date: 20190204
  Transmission Date: 20190417
  Serious: Yes (Hospitalization)
  Sender: FDA-Public Use
  Company Number: CN-ELI_LILLY_AND_COMPANY-CN201902000290

PATIENT
  Age: 68 Year
  Sex: Female

DRUGS (3)
  1. HUMULIN 70/30 [Suspect]
     Active Substance: INSULIN HUMAN
     Indication: BLOOD GLUCOSE INCREASED
     Dosage: 16 U, BID
     Route: 058
     Dates: start: 20181031, end: 20181205
  2. GLIMEPIRIDE. [Concomitant]
     Active Substance: GLIMEPIRIDE
     Indication: BLOOD GLUCOSE ABNORMAL
     Route: 048
  3. METFORMIN HYDROCHLORIDE. [Concomitant]
     Active Substance: METFORMIN HYDROCHLORIDE
     Indication: BLOOD GLUCOSE ABNORMAL
     Route: 048

REACTIONS (4)
  - Hyperhidrosis [Recovering/Resolving]
  - Tremor [Recovering/Resolving]
  - Blood glucose abnormal [Recovering/Resolving]
  - Back pain [Recovering/Resolving]

NARRATIVE: CASE EVENT DATE: 20181104
